FAERS Safety Report 5216845-4 (Version None)
Quarter: 2007Q1

REPORT INFORMATION
  Report Type: 
  Country: None (occurrence: None)
  Receive Date: 20070119
  Receipt Date: 20070105
  Transmission Date: 20070707
  Serious: No
  Sender: FDA-Public Use
  Company Number: 20063385

PATIENT
  Sex: Male

DRUGS (1)
  1. LIORESAL [Suspect]
     Indication: MUSCLE SPASTICITY
     Dosage: UNK MCG, DAILY, INTRATHECAL
     Route: 037

REACTIONS (10)
  - BACK PAIN [None]
  - COLD SWEAT [None]
  - DYSPNOEA [None]
  - FEELING HOT [None]
  - INSOMNIA [None]
  - MEDICAL DEVICE PAIN [None]
  - MUSCLE SPASMS [None]
  - NAUSEA [None]
  - PAIN [None]
  - PYREXIA [None]
